FAERS Safety Report 5918790-5 (Version None)
Quarter: 2008Q3

REPORT INFORMATION
  Report Type: 
  Country: None (occurrence: None)
  Receive Date: 20080909
  Receipt Date: 20070827
  Transmission Date: 20090109
  Serious: Yes (Death)
  Sender: FDA-Public Use
  Company Number: 163-20785-07080023

PATIENT
  Age: 65 Year
  Sex: Female

DRUGS (1)
  1. THALOMID [Suspect]
     Indication: RENAL CANCER METASTATIC
     Dosage: 200 MG, 1 IN 1 D, ORAL
     Route: 047
     Dates: start: 20070301, end: 20070501

REACTIONS (3)
  - METASTASES TO LIVER [None]
  - METASTASES TO LUNG [None]
  - NEOPLASM PROGRESSION [None]
